FAERS Safety Report 8967387 (Version 1)
Quarter: 2012Q4

REPORT INFORMATION
  Report Type: 
  Country: BR (occurrence: BR)
  Receive Date: 20121214
  Receipt Date: 20121214
  Transmission Date: 20130627
  Serious: Yes (Hospitalization)
  Sender: FDA-Public Use
  Company Number: BR-ASTRAZENECA-2012SE76507

PATIENT
  Age: 63 Year
  Sex: Female

DRUGS (1)
  1. ATACAND HCT [Suspect]
     Indication: HYPERTENSION
     Dosage: 16/12.5 MG
     Route: 048
     Dates: start: 2010

REACTIONS (2)
  - Thyroid neoplasm [Recovered/Resolved]
  - Dysphonia [Recovered/Resolved]
